FAERS Safety Report 12310764 (Version 12)
Quarter: 2018Q4

REPORT INFORMATION
  Report Type: Report from Study
  Country: DE (occurrence: DE)
  Receive Date: 20160427
  Receipt Date: 20181009
  Transmission Date: 20190204
  Serious: Yes (Hospitalization)
  Sender: FDA-Public Use
  Company Number: PHHY2016DE051745

PATIENT
  Age: 66 Year
  Sex: Female
  Weight: 63 kg

DRUGS (14)
  1. SIGNIFOR [Suspect]
     Active Substance: PASIREOTIDE
     Dosage: 0.6 MG, BID
     Route: 058
     Dates: start: 20160109, end: 20160403
  2. METHOTREXATE. [Concomitant]
     Active Substance: METHOTREXATE
     Dosage: 15 MG, QW, ONCE IN A WEEK
     Route: 058
  3. SIGNIFOR [Suspect]
     Active Substance: PASIREOTIDE
     Dosage: UNK
     Route: 058
     Dates: start: 20180115
  4. PANTOZOL [Concomitant]
     Active Substance: PANTOPRAZOLE SODIUM
     Dosage: 40 MG, QD (1-0-0)
     Route: 065
  5. TORSEMIDE. [Concomitant]
     Active Substance: TORSEMIDE
     Indication: PRODUCT USED FOR UNKNOWN INDICATION
  6. DESMOPRESSIN [Concomitant]
     Active Substance: DESMOPRESSIN
     Indication: PRODUCT USED FOR UNKNOWN INDICATION
     Dosage: 0.1 MG, BID (1-0-1)
     Route: 065
  7. METHOTREXATE. [Concomitant]
     Active Substance: METHOTREXATE
     Indication: PRODUCT USED FOR UNKNOWN INDICATION
  8. PANTOZOL [Concomitant]
     Active Substance: PANTOPRAZOLE SODIUM
     Indication: PRODUCT USED FOR UNKNOWN INDICATION
  9. SIGNIFOR [Suspect]
     Active Substance: PASIREOTIDE
     Indication: PITUITARY-DEPENDENT CUSHING^S SYNDROME
     Dosage: 0.6 MG, BID
     Route: 058
     Dates: start: 20140120, end: 20160108
  10. DESMOPRESSIN [Concomitant]
     Active Substance: DESMOPRESSIN
     Indication: PRODUCT USED FOR UNKNOWN INDICATION
  11. ALLOPURINOL. [Concomitant]
     Active Substance: ALLOPURINOL
     Dosage: 100 OT, QD
     Route: 065
  12. TORSEMIDE. [Concomitant]
     Active Substance: TORSEMIDE
     Dosage: 10 MG, QD (1-0-0)
     Route: 065
  13. SIGNIFOR [Suspect]
     Active Substance: PASIREOTIDE
     Dosage: 0.6 MG, BID
     Route: 058
     Dates: start: 20160418
  14. ALLOPURINOL. [Concomitant]
     Active Substance: ALLOPURINOL
     Indication: PRODUCT USED FOR UNKNOWN INDICATION

REACTIONS (19)
  - Infection [Recovered/Resolved]
  - Muscular weakness [Unknown]
  - Pyrexia [Recovered/Resolved]
  - Headache [Unknown]
  - Infection [Recovered/Resolved]
  - Hypotonia [Recovered/Resolved]
  - Hypotension [Recovered/Resolved]
  - Constipation [Recovered/Resolved]
  - Flatulence [Recovered/Resolved]
  - Nausea [Unknown]
  - Weight increased [Unknown]
  - Nausea [Recovered/Resolved]
  - Vomiting [Recovered/Resolved]
  - Nasopharyngitis [Recovered/Resolved]
  - Adrenocortical insufficiency acute [Recovered/Resolved]
  - Otitis media [Recovered/Resolved]
  - Nasopharyngitis [Recovered/Resolved]
  - Fatigue [Unknown]
  - Cataract [Recovered/Resolved]

NARRATIVE: CASE EVENT DATE: 20160403
